FAERS Safety Report 5092505-8 (Version None)
Quarter: 2006Q3

REPORT INFORMATION
  Report Type: 
  Country: None (occurrence: None)
  Receive Date: 20060828
  Receipt Date: 20060817
  Transmission Date: 20061208
  Serious: Yes (Other)
  Sender: FDA-Public Use
  Company Number: 2006100330

PATIENT
  Age: 86 Year
  Sex: Female
  Weight: 57.6068 kg

DRUGS (4)
  1. LIPITOR [Suspect]
     Indication: BLOOD CHOLESTEROL INCREASED
     Dates: end: 20060101
  2. TRANZINE (CHLORPROMAZINE HYDROCHLORIDE) [Concomitant]
  3. DILANTIN [Concomitant]
  4. LOTENSIN [Concomitant]

REACTIONS (1)
  - MYALGIA [None]
